FAERS Safety Report 8647043 (Version 5)
Quarter: 2014Q4

REPORT INFORMATION
  Report Type: Report from Study
  Country: JP (occurrence: JP)
  Receive Date: 20120703
  Receipt Date: 20141113
  Transmission Date: 20150529
  Serious: Yes (Other)
  Sender: FDA-Public Use
  Company Number: PHHY2012JP056491

PATIENT
  Age: 55 Year
  Sex: Male
  Weight: 47 kg

DRUGS (11)
  1. AMN107 [Suspect]
     Active Substance: NILOTINIB
     Dosage: 600 MG, QD
     Route: 048
     Dates: start: 20110706, end: 20110802
  2. AMN107 [Suspect]
     Active Substance: NILOTINIB
     Dosage: 600 MG, QD
     Route: 048
     Dates: start: 20110907, end: 20111004
  3. OMEPRAZOLE. [Concomitant]
     Active Substance: OMEPRAZOLE
     Indication: PRODUCT USED FOR UNKNOWN INDICATION
     Dosage: 10 MG
     Route: 048
     Dates: start: 20111221, end: 20120103
  4. AMN107 [Suspect]
     Active Substance: NILOTINIB
     Indication: CHRONIC MYELOID LEUKAEMIA
     Dosage: 800 MG, QD
     Route: 048
     Dates: start: 20091224, end: 20110322
  5. AMN107 [Suspect]
     Active Substance: NILOTINIB
     Dosage: 800 MG, QD
     Route: 048
     Dates: start: 20111005, end: 20120627
  6. AMN107 [Suspect]
     Active Substance: NILOTINIB
     Dosage: 600 MG, QD
     Route: 048
     Dates: start: 20120718
  7. AMN107 [Suspect]
     Active Substance: NILOTINIB
     Dosage: 400 MG, QD
     Route: 048
     Dates: start: 20110803, end: 20110906
  8. AMN107 [Suspect]
     Active Substance: NILOTINIB
     Dosage: 400 MG, QD
     Route: 048
     Dates: start: 20120704, end: 20120717
  9. AMN107 [Suspect]
     Active Substance: NILOTINIB
     Dosage: 400 MG, QD
     Route: 048
     Dates: start: 20110330, end: 20110705
  10. TAKEPRON [Concomitant]
     Active Substance: LANSOPRAZOLE
     Indication: PROPHYLAXIS
     Dosage: 15 MG
     Route: 048
     Dates: start: 20091224, end: 20101223
  11. TRANSAMIN [Concomitant]
     Active Substance: TRANEXAMIC ACID
     Indication: PANCYTOPENIA
     Dosage: 750 MG
     Route: 048
     Dates: start: 20091225, end: 20100116

REACTIONS (8)
  - Electrocardiogram QT prolonged [Unknown]
  - Rash [Recovering/Resolving]
  - Palpitations [Recovered/Resolved]
  - Pruritus [Recovering/Resolving]
  - Sinus node dysfunction [Recovered/Resolved]
  - Rash maculo-papular [Recovering/Resolving]
  - Platelet count decreased [Unknown]
  - Hyperbilirubinaemia [Recovering/Resolving]

NARRATIVE: CASE EVENT DATE: 20091230
